FAERS Safety Report 16354260 (Version 1)
Quarter: 2019Q2

REPORT INFORMATION
  Report Type: Other
  Country: IL (occurrence: IL)
  Receive Date: 20190524
  Receipt Date: 20190524
  Transmission Date: 20190711
  Serious: Yes (Life-Threatening, Hospitalization)
  Sender: FDA-Public Use
  Company Number: IL-TARO PHARMACEUTICALS USA.,INC-2019SUN00232

PATIENT
  Age: 83 Year
  Sex: Male

DRUGS (1)
  1. COUMADIN [Suspect]
     Active Substance: WARFARIN SODIUM
     Indication: AORTIC VALVE REPLACEMENT
     Dosage: UNK
     Route: 048

REACTIONS (2)
  - Fall [Unknown]
  - Cerebral haemorrhage [Recovering/Resolving]
